FAERS Safety Report 20710064 (Version 1)
Quarter: 2022Q2

REPORT INFORMATION
  Report Type: Spontaneous
  Country: NL (occurrence: NL)
  Receive Date: 20220414
  Receipt Date: 20220414
  Transmission Date: 20220721
  Serious: Yes (Hospitalization)
  Sender: FDA-Public Use
  Company Number: NL-TEVA-2022-NL-2014923

PATIENT
  Age: 75 Year
  Sex: Female
  Weight: 98 kg

DRUGS (44)
  1. DOXORUBICIN [Suspect]
     Active Substance: DOXORUBICIN
     Indication: Diffuse large B-cell lymphoma
     Dosage: UNK
  2. DOXORUBICIN [Suspect]
     Active Substance: DOXORUBICIN
     Dosage: 50 MILLIGRAM/SQ. METER, Q3W
     Route: 042
     Dates: start: 20210826, end: 20211216
  3. PREDNISONE [Suspect]
     Active Substance: PREDNISONE
     Indication: Diffuse large B-cell lymphoma stage IV
     Dosage: 100 MILLIGRAM, QD, 100 MILLIGRAM DAILY
     Route: 042
     Dates: start: 20210826, end: 20210826
  4. PREDNISONE [Suspect]
     Active Substance: PREDNISONE
     Dosage: 100 MILLIGRAM, QD, 100 MILLIGRAM DAILY
     Route: 042
     Dates: start: 20210827, end: 20210830
  5. PREDNISONE [Suspect]
     Active Substance: PREDNISONE
     Dosage: 100 MILLIGRAM, QD, 100 MILLIGRAM DAILY
     Route: 042
     Dates: start: 20210915, end: 20210918
  6. PREDNISONE [Suspect]
     Active Substance: PREDNISONE
     Dosage: 100 MILLIGRAM, QD, 100 MILLIGRAM DAILY
     Route: 042
     Dates: start: 20211103, end: 20211106
  7. PREDNISONE [Suspect]
     Active Substance: PREDNISONE
     Dosage: 100 MILLIGRAM, QD, 100 MILLIGRAM DAILY
     Route: 042
     Dates: start: 20211014, end: 20211017
  8. CYCLOPHOSPHAMIDE [Suspect]
     Active Substance: CYCLOPHOSPHAMIDE
     Indication: Diffuse large B-cell lymphoma
     Dosage: UNK
  9. RITUXIMAB [Suspect]
     Active Substance: RITUXIMAB
     Indication: Diffuse large B-cell lymphoma stage IV
     Dosage: 375 MILLIGRAM/SQ. METER
     Route: 042
     Dates: start: 20210826, end: 20211216
  10. EPCORITAMAB [Suspect]
     Active Substance: EPCORITAMAB
     Indication: Diffuse large B-cell lymphoma
     Dosage: UNK, .8 MILLIGRAM DAILY; SINGLE
     Route: 058
     Dates: start: 20210901, end: 20210901
  11. EPCORITAMAB [Suspect]
     Active Substance: EPCORITAMAB
     Dosage: 48 MILLIGRAM
     Route: 058
     Dates: start: 20210107, end: 20210107
  12. EPCORITAMAB [Suspect]
     Active Substance: EPCORITAMAB
     Dosage: UNK, .16 MILLIGRAM DAILY; PRIMING DOSE, SINGLR
     Route: 058
     Dates: start: 20210826, end: 20210826
  13. EPCORITAMAB [Suspect]
     Active Substance: EPCORITAMAB
     Dosage: 48 MILLIGRAM
     Route: 058
     Dates: start: 20211125, end: 20211216
  14. EPCORITAMAB [Suspect]
     Active Substance: EPCORITAMAB
     Dosage: UNK, 48 MILLIGRAM DAILY; FULL DOSE; WEEKLY (C1-4)
     Route: 058
     Dates: start: 20210908, end: 20211118
  15. RITUXIMAB [Suspect]
     Active Substance: RITUXIMAB
     Indication: Diffuse large B-cell lymphoma
     Dosage: UNK
  16. DEXAMETHASONE [Suspect]
     Active Substance: DEXAMETHASONE
     Indication: Diffuse large B-cell lymphoma stage IV
     Dosage: 4 MILLIGRAM DAILY
     Route: 037
     Dates: start: 20210915, end: 20210915
  17. DEXAMETHASONE [Suspect]
     Active Substance: DEXAMETHASONE
     Dosage: 4 MILLIGRAM DAILY
     Route: 037
     Dates: start: 20211014, end: 20211014
  18. VINCRISTINE [Suspect]
     Active Substance: VINCRISTINE
     Indication: Diffuse large B-cell lymphoma
     Dosage: UNK
  19. CYCLOPHOSPHAMIDE [Suspect]
     Active Substance: CYCLOPHOSPHAMIDE
     Indication: Diffuse large B-cell lymphoma stage IV
     Dosage: 750 MILLIGRAM/SQ. METER
     Route: 042
     Dates: start: 20210826, end: 20211216
  20. VINCRISTINE [Suspect]
     Active Substance: VINCRISTINE
     Indication: Diffuse large B-cell lymphoma stage IV
     Dosage: 1.4 MILLIGRAM/SQ. METER
     Route: 042
     Dates: start: 20210826, end: 20211216
  21. DORZOLAMIDE HYDROCHLORIDE\TIMOLOL MALEATE [Concomitant]
     Active Substance: DORZOLAMIDE HYDROCHLORIDE\TIMOLOL MALEATE
     Dosage: UNK
     Dates: start: 20210929, end: 20220112
  22. LEVOTHYROXINE [Concomitant]
     Active Substance: LEVOTHYROXINE
     Dosage: UNK
     Dates: start: 20180212
  23. DIGOXIN [Concomitant]
     Active Substance: DIGOXIN
     Dosage: UNK
     Dates: start: 20211119, end: 20220112
  24. PAROXETINE [Concomitant]
     Active Substance: PAROXETINE
     Dosage: UNK
     Dates: start: 20170123
  25. BRIMONIDINE [Concomitant]
     Active Substance: BRIMONIDINE TARTRATE
     Dosage: UNK
     Dates: start: 20210929
  26. PREDNISONE [Concomitant]
     Active Substance: PREDNISONE
     Dosage: 100 MILLIGRAM
     Route: 048
     Dates: start: 20210902, end: 20210904
  27. PREDNISONE [Concomitant]
     Active Substance: PREDNISONE
     Dosage: 100 MILLIGRAM
     Route: 048
     Dates: start: 20210909, end: 20210911
  28. CICLOPIROX [Concomitant]
     Active Substance: CICLOPIROX
     Dosage: UNK
     Dates: start: 20211002
  29. MAGNESIUM [Concomitant]
     Active Substance: MAGNESIUM
     Dosage: UNK
     Dates: start: 20211206, end: 20220106
  30. LOPERAMIDE [Concomitant]
     Active Substance: LOPERAMIDE
     Dosage: UNK
     Dates: start: 20211207
  31. ALGELDRATE\MAGNESIUM HYDROXIDE [Concomitant]
     Active Substance: ALGELDRATE\MAGNESIUM HYDROXIDE
     Dosage: UNK
     Dates: start: 20211206, end: 20220116
  32. PREDNISONE [Concomitant]
     Active Substance: PREDNISONE
     Dosage: 100 MILLIGRAM, ON 01-SEP-2021 AND 08-SEP-2021
     Route: 042
     Dates: start: 20210901
  33. CALCIUM\VITAMIN D [Concomitant]
     Active Substance: CALCIUM\VITAMIN D
     Dosage: UNK
     Dates: start: 20211202
  34. PEGFILGRASTIM [Concomitant]
     Active Substance: PEGFILGRASTIM
     Dosage: UNK
     Dates: start: 20210915
  35. DEXAMETHASONE [Concomitant]
     Active Substance: DEXAMETHASONE
     Dosage: 4 MILLIGRAM
     Route: 037
     Dates: start: 20211118, end: 20211118
  36. ACETAMINOPHEN [Concomitant]
     Active Substance: ACETAMINOPHEN
     Dosage: UNK
     Dates: start: 20210922
  37. NOVORAPID [Concomitant]
     Active Substance: INSULIN ASPART
     Dosage: UNK
     Dates: start: 20211202
  38. GRANISETRON [Concomitant]
     Active Substance: GRANISETRON
     Dosage: UNK
     Dates: start: 20211216, end: 20211216
  39. METOPROLOL [Concomitant]
     Active Substance: METOPROLOL
     Dosage: UNK
     Dates: start: 20210714
  40. POTASSIUM CHLORIDE [Concomitant]
     Active Substance: POTASSIUM CHLORIDE
     Dosage: UNK
     Dates: start: 20210929
  41. VANCOMYCIN [Concomitant]
     Active Substance: VANCOMYCIN
     Dosage: UNK
     Dates: start: 20211213, end: 20220113
  42. DABIGATRAN [Concomitant]
     Active Substance: DABIGATRAN
     Dosage: UNK
     Dates: start: 20210714
  43. METOCLOPRAMIDE [Concomitant]
     Active Substance: METOCLOPRAMIDE
     Dosage: UNK
     Dates: start: 20211025, end: 20220118
  44. MAGNESIUM SULFATE [Concomitant]
     Active Substance: MAGNESIUM SULFATE
     Dosage: UNK
     Dates: start: 20220114, end: 20220114

REACTIONS (2)
  - Pneumonia klebsiella [Recovered/Resolved]
  - Urinary tract infection [Unknown]

NARRATIVE: CASE EVENT DATE: 20220111
